FAERS Safety Report 17059984 (Version 2)
Quarter: 2019Q4

REPORT INFORMATION
  Report Type: Spontaneous
  Country: US (occurrence: US)
  Receive Date: 20191121
  Receipt Date: 20191213
  Transmission Date: 20200122
  Serious: No
  Sender: FDA-Public Use
  Company Number: US-NOVOPROD-684184

PATIENT
  Age: 74 Year
  Sex: Female

DRUGS (2)
  1. LEVEMIR [Suspect]
     Active Substance: INSULIN DETEMIR
     Indication: TYPE 2 DIABETES MELLITUS
     Dosage: 26 IU, QD (15 UNITS AM, 11 UNITS PM)
     Route: 058
  2. NOVOLOG [Suspect]
     Active Substance: INSULIN ASPART
     Indication: TYPE 2 DIABETES MELLITUS
     Dosage: 6 UNITS AM , 6 U AT NOON, 11 UNITS AT SUPPER TIME
     Route: 058

REACTIONS (2)
  - Hypoacusis [Recovered/Resolved]
  - Blood glucose decreased [Recovered/Resolved]
